FAERS Safety Report 14403172 (Version 8)
Quarter: 2018Q1

REPORT INFORMATION
  Report Type: Report from Study
  Country: IT (occurrence: IT)
  Receive Date: 20180117
  Receipt Date: 20180329
  Transmission Date: 20180509
  Serious: Yes (Life-Threatening, Hospitalization)
  Sender: FDA-Public Use
  Company Number: IT-ROCHE-2056004

PATIENT
  Age: 45 Year
  Sex: Female
  Weight: 43 kg

DRUGS (41)
  1. TACROLIMUS. [Suspect]
     Active Substance: TACROLIMUS
     Route: 065
     Dates: start: 20180131
  2. CHLORPHENAMINE [Concomitant]
     Active Substance: CHLORPHENIRAMINE MALEATE
     Dosage: 17/JAN/2013, 01/FEB/2013, 05/JUL/2013, 17/DEC/2013, 19/JUN/2014, 01/DEC/2014, 15/DEC/2014, 19/MAY/20
     Route: 065
  3. OMEPRAZEN [Concomitant]
     Active Substance: OMEPRAZOLE
     Route: 065
     Dates: start: 201211
  4. RABEPRAZOLO [Concomitant]
     Route: 065
     Dates: start: 20170810
  5. LANTUS [Concomitant]
     Active Substance: INSULIN GLARGINE
     Route: 065
     Dates: start: 20180131
  6. CARDIOASPIRINA [Concomitant]
     Active Substance: ASPIRIN
     Route: 065
     Dates: start: 20170810
  7. LANTUS [Concomitant]
     Active Substance: INSULIN GLARGINE
     Route: 065
     Dates: start: 20171223, end: 201801
  8. LANTUS [Concomitant]
     Active Substance: INSULIN GLARGINE
     Route: 065
     Dates: start: 20180105
  9. PARACETAMOL [Concomitant]
     Active Substance: ACETAMINOPHEN
     Route: 065
     Dates: start: 201707, end: 201707
  10. BACTRIM [Concomitant]
     Active Substance: SULFAMETHOXAZOLE\TRIMETHOPRIM
     Route: 065
     Dates: start: 20180130
  11. LANTUS [Concomitant]
     Active Substance: INSULIN GLARGINE
     Route: 065
     Dates: start: 201712, end: 20171222
  12. OCRELIZUMAB. [Suspect]
     Active Substance: OCRELIZUMAB
     Dosage: WEEK 24, CYCLE 6
     Route: 042
     Dates: start: 20150519, end: 20150519
  13. CARVEDILOL. [Concomitant]
     Active Substance: CARVEDILOL
     Route: 065
     Dates: start: 20170810
  14. CITOFOLIN [Concomitant]
     Route: 065
     Dates: start: 20180130
  15. GABAPENTIN. [Concomitant]
     Active Substance: GABAPENTIN
     Route: 065
     Dates: start: 20180130
  16. OCRELIZUMAB. [Suspect]
     Active Substance: OCRELIZUMAB
     Dosage: WEEK 120, CYCLE 10
     Route: 042
     Dates: start: 20170324, end: 20170324
  17. TACROLIMUS. [Suspect]
     Active Substance: TACROLIMUS
     Route: 065
     Dates: start: 20180131
  18. PARACETAMOL [Concomitant]
     Active Substance: ACETAMINOPHEN
     Dosage: 17/JAN/2013, 01/FEB/2013, 05/JUL/2013, 17/DEC/2013, 19/JUN/2014, 01/DEC/2014, 15/DEC/2014, 19/MAY/20
     Route: 065
  19. PARACETAMOL [Concomitant]
     Active Substance: ACETAMINOPHEN
     Route: 065
     Dates: start: 20150216
  20. CARVEDILOL. [Concomitant]
     Active Substance: CARVEDILOL
     Route: 065
     Dates: start: 20170810
  21. HUMALOG [Concomitant]
     Active Substance: INSULIN LISPRO
     Route: 065
     Dates: start: 20170810, end: 20180130
  22. OCRELIZUMAB. [Suspect]
     Active Substance: OCRELIZUMAB
     Indication: RELAPSING-REMITTING MULTIPLE SCLEROSIS
     Dosage: WEEK 1, CYCLE 1 ADMINISTERED ON DAY 1 AND 15 OF FIRST 24 WEEK CYCLE FOLLOWED BY DAY 1 OF EACH SUBSEQ
     Route: 042
     Dates: start: 20130117, end: 20130117
  23. PLACEBO [Suspect]
     Active Substance: UNSPECIFIED INGREDIENT
     Indication: RELAPSING-REMITTING MULTIPLE SCLEROSIS
     Route: 058
     Dates: start: 20130117
  24. OCRELIZUMAB. [Suspect]
     Active Substance: OCRELIZUMAB
     Dosage: WEEK 96, CYCLE 9
     Route: 042
     Dates: start: 20160929, end: 20160929
  25. METHYLPREDNISOLONE. [Concomitant]
     Active Substance: METHYLPREDNISOLONE
     Dosage: 17/JAN/2013, 01/FEB/2013, 05/JUL/2013, 17/DEC/2013, 19/JUN/2014, 01/DEC/2014, 15/DEC/2014, 19/MAY/20
     Route: 065
  26. LYRICA [Concomitant]
     Active Substance: PREGABALIN
     Route: 065
     Dates: start: 201710
  27. OCRELIZUMAB. [Suspect]
     Active Substance: OCRELIZUMAB
     Dosage: WEEK 24, CYCLE 2
     Route: 042
     Dates: start: 20130705, end: 20130705
  28. OCRELIZUMAB. [Suspect]
     Active Substance: OCRELIZUMAB
     Indication: RELAPSING-REMITTING MULTIPLE SCLEROSIS
     Dosage: WEEK 0, CYCLE 5, DAY 1 OF FIRST 24 WEEK CYCLE FOLLOWED BY DAY 1 OF EACH SUBSEQUENT 24 WEEK CYCLE AS
     Route: 042
     Dates: start: 20141201, end: 20141201
  29. TACROLIMUS. [Suspect]
     Active Substance: TACROLIMUS
     Indication: LIVER TRANSPLANT
     Route: 065
     Dates: start: 20170810
  30. ABASAGLAR [Concomitant]
     Active Substance: INSULIN GLARGINE
     Route: 065
     Dates: start: 20170810, end: 201801
  31. DEURSIL [Concomitant]
     Active Substance: URSODIOL
     Route: 065
     Dates: start: 20170810
  32. LAMIVUDINA [Concomitant]
     Active Substance: LAMIVUDINE
     Route: 065
     Dates: start: 20170810
  33. OCRELIZUMAB. [Suspect]
     Active Substance: OCRELIZUMAB
     Dosage: WEEK 72, CYCLE 4
     Route: 042
     Dates: start: 20140619, end: 20140619
  34. OCRELIZUMAB. [Suspect]
     Active Substance: OCRELIZUMAB
     Dosage: WEEK 2, CYCLE 5, DAY 15 OF FIRST 24 WEEK CYCLE FOLLOWED BY DAY 1 OF EACH SUBSEQUENT 24 WEEK CYCLE AS
     Route: 042
     Dates: start: 20141215, end: 20141215
  35. OCRELIZUMAB. [Suspect]
     Active Substance: OCRELIZUMAB
     Dosage: WEEK 48, CYCLE 7
     Route: 042
     Dates: start: 20151029, end: 20151029
  36. OCRELIZUMAB. [Suspect]
     Active Substance: OCRELIZUMAB
     Dosage: WEEK 72, CYCLE 8
     Route: 042
     Dates: start: 20160422, end: 20160422
  37. OCRELIZUMAB. [Suspect]
     Active Substance: OCRELIZUMAB
     Route: 042
     Dates: end: 20171120
  38. TACROLIMUS. [Suspect]
     Active Substance: TACROLIMUS
     Route: 065
     Dates: start: 201708
  39. OCRELIZUMAB. [Suspect]
     Active Substance: OCRELIZUMAB
     Dosage: WEEK 2, DAY 15 OF FIRST 24 WEEK CYCLE FOLLOWED BY DAY 1 OF EACH SUBSEQUENT 24 WEEK CYCLE AS PER PROT
     Route: 042
     Dates: start: 20130201, end: 20130201
  40. OCRELIZUMAB. [Suspect]
     Active Substance: OCRELIZUMAB
     Dosage: WEEK 48, CYCLE 3
     Route: 042
     Dates: start: 20131217, end: 20131217
  41. PLACEBO [Suspect]
     Active Substance: UNSPECIFIED INGREDIENT
     Dosage: MOST RECENT DOSE PRIOR TO SAE: 29/NOV/2014
     Route: 058
     Dates: start: 20141122

REACTIONS (3)
  - Pyrexia [Recovered/Resolved]
  - Pneumonia [Recovered/Resolved]
  - Pneumococcal sepsis [Recovered/Resolved]

NARRATIVE: CASE EVENT DATE: 20171218
